FAERS Safety Report 9039383 (Version 1)
Quarter: 2013Q1

REPORT INFORMATION
  Report Type: Report from Study
  Country: US (occurrence: US)
  Receive Date: 20130129
  Receipt Date: 20130129
  Transmission Date: 20140127
  Serious: No
  Sender: FDA-Public Use
  Company Number: US-ABBOTT-12P-163-0934348-00

PATIENT
  Age: 18 None
  Sex: Female
  Weight: 45.4 kg

DRUGS (10)
  1. HUMIRA 40 MG/0.8 ML PEN [Suspect]
     Indication: JUVENILE IDIOPATHIC ARTHRITIS
     Dates: start: 20120119
  2. HUMIRA 40 MG/0.8 ML PEN [Suspect]
     Dates: start: 2010
  3. METHOTREXATE [Suspect]
     Indication: JUVENILE IDIOPATHIC ARTHRITIS
  4. FOLIC ACID [Concomitant]
     Indication: VITAMIN SUPPLEMENTATION
  5. NAPROXEN [Concomitant]
     Indication: JUVENILE IDIOPATHIC ARTHRITIS
  6. ZANTAC [Concomitant]
     Indication: PRODUCT USED FOR UNKNOWN INDICATION
  7. MULTIVITAMIN [Concomitant]
     Indication: VITAMIN SUPPLEMENTATION
  8. POWER DRINK [Concomitant]
     Indication: UNDERWEIGHT
  9. ACIDOPHILUS [Concomitant]
     Indication: PRODUCT USED FOR UNKNOWN INDICATION
  10. VITAMIN B 12 [Concomitant]
     Indication: VITAMIN SUPPLEMENTATION

REACTIONS (15)
  - Tooth resorption [Not Recovered/Not Resolved]
  - Stomatitis [Recovered/Resolved]
  - Blood iron decreased [Unknown]
  - Malaise [Recovered/Resolved]
  - Vomiting [Recovered/Resolved]
  - Fatigue [Recovered/Resolved]
  - Fungal infection [Recovered/Resolved]
  - Respiratory tract infection [Recovering/Resolving]
  - Mucosal inflammation [Recovered/Resolved]
  - Cough [Not Recovered/Not Resolved]
  - Swelling [Not Recovered/Not Resolved]
  - Tooth erosion [Not Recovered/Not Resolved]
  - Tooth disorder [Not Recovered/Not Resolved]
  - Mouth ulceration [Recovered/Resolved]
  - Dry mouth [Not Recovered/Not Resolved]
